FAERS Safety Report 24114114 (Version 1)
Quarter: 2024Q3

REPORT INFORMATION
  Report Type: Spontaneous
  Country: BR (occurrence: BR)
  Receive Date: 20240720
  Receipt Date: 20240720
  Transmission Date: 20241017
  Serious: Yes (Other)
  Sender: CELLTRION
  Company Number: BR-CELLTRION INC.-2023BR000724

PATIENT

DRUGS (3)
  1. INFLIXIMAB [Suspect]
     Active Substance: INFLIXIMAB
     Indication: Rheumatoid arthritis
     Dosage: 6 AMPOULES, EVERY 8 WEEKS, BUT COULD NOT INFORM THE MILLIGRAMS, DATE STARTED: 4 MONTHS AGO
     Route: 042
     Dates: end: 20220110
  2. INFLIXIMAB [Suspect]
     Active Substance: INFLIXIMAB
     Indication: Uveitis
  3. LOSARTAN [Concomitant]
     Active Substance: LOSARTAN
     Dosage: 2 DF, DAILY
     Route: 048

REACTIONS (7)
  - Uveitis [Recovered/Resolved]
  - Jaundice [Unknown]
  - Arthralgia [Unknown]
  - Infusion related hypersensitivity reaction [Unknown]
  - Intentional product use issue [Unknown]
  - Drug ineffective [Unknown]
  - Intentional dose omission [Unknown]
